FAERS Safety Report 9457146 (Version 1)
Quarter: 2013Q3

REPORT INFORMATION
  Report Type: Spontaneous
  Country: US (occurrence: US)
  Receive Date: 20130814
  Receipt Date: 20130814
  Transmission Date: 20140515
  Serious: No
  Sender: FDA-Public Use
  Company Number: US-BIOGENIDEC-2013BI075012

PATIENT
  Age: 46 Year
  Sex: Female

DRUGS (3)
  1. TYSABRI [Suspect]
     Indication: MULTIPLE SCLEROSIS
     Route: 042
     Dates: start: 20120813
  2. INVEGA SUSTENNA [Concomitant]
     Indication: BIPOLAR DISORDER
  3. FLEXERIL [Concomitant]
     Indication: MYALGIA

REACTIONS (5)
  - Panic attack [Recovered/Resolved]
  - Accidental overdose [Recovered/Resolved]
  - Dysarthria [Recovered/Resolved]
  - Loss of consciousness [Recovered/Resolved]
  - Blood pressure decreased [Recovered/Resolved]
